FAERS Safety Report 22344875 (Version 5)
Quarter: 2024Q3

REPORT INFORMATION
  Report Type: Report from Study
  Country: DE (occurrence: DE)
  Receive Date: 20230519
  Receipt Date: 20240820
  Transmission Date: 20241017
  Serious: Yes (Other)
  Sender: NOVARTIS
  Company Number: DE-002147023-NVSC2023DE113581

PATIENT
  Sex: Female
  Weight: 78 kg

DRUGS (42)
  1. COSENTYX [Suspect]
     Active Substance: SECUKINUMAB
     Indication: Psoriatic arthropathy
     Dosage: 150 MG, ONCE/SINGLE (ROUTE: INJECTION)
     Route: 065
     Dates: start: 20190815, end: 20190815
  2. COSENTYX [Suspect]
     Active Substance: SECUKINUMAB
     Dosage: 150 MG, ONCE/SINGLE (ROUTE: INJECTION)
     Route: 065
     Dates: start: 20190822, end: 20190822
  3. COSENTYX [Suspect]
     Active Substance: SECUKINUMAB
     Dosage: 150 MG, ONCE/SINGLE (ROUTE: INJECTION)
     Route: 065
     Dates: start: 20190829, end: 20190829
  4. COSENTYX [Suspect]
     Active Substance: SECUKINUMAB
     Dosage: 150 MG, ONCE/SINGLE (ROUTE: INJECTION)
     Route: 065
     Dates: start: 20190905, end: 20190905
  5. COSENTYX [Suspect]
     Active Substance: SECUKINUMAB
     Dosage: 150 MG, ONCE/SINGLE (ROUTE: INJECTION)
     Route: 065
     Dates: start: 20190912, end: 20190912
  6. COSENTYX [Suspect]
     Active Substance: SECUKINUMAB
     Dosage: 150 MG, ONCE/SINGLE (ROUTE: INJECTION)
     Route: 065
     Dates: start: 20191012, end: 20191012
  7. COSENTYX [Suspect]
     Active Substance: SECUKINUMAB
     Dosage: 150 MG, ONCE/SINGLE (ROUTE: INJECTION)
     Route: 065
     Dates: start: 20191112, end: 20191112
  8. COSENTYX [Suspect]
     Active Substance: SECUKINUMAB
     Dosage: 150 MG, ONCE/SINGLE (ROUTE: INJECTION)
     Route: 065
     Dates: start: 20191212, end: 20191212
  9. COSENTYX [Suspect]
     Active Substance: SECUKINUMAB
     Dosage: 150 MG, ONCE/SINGLE (ROUTE: INJECTION)
     Route: 065
     Dates: start: 20200112, end: 20200112
  10. COSENTYX [Suspect]
     Active Substance: SECUKINUMAB
     Dosage: 150 MG, ONCE/SINGLE (ROUTE: INJECTION)
     Route: 065
     Dates: start: 20200212, end: 20200212
  11. COSENTYX [Suspect]
     Active Substance: SECUKINUMAB
     Dosage: 150 MG, ONCE/SINGLE (ROUTE: INJECTION)
     Route: 065
     Dates: start: 20200312, end: 20200312
  12. COSENTYX [Suspect]
     Active Substance: SECUKINUMAB
     Dosage: 150 MG, ONCE/SINGLE (ROUTE: INJECTION)
     Route: 065
     Dates: start: 20200412, end: 20200412
  13. COSENTYX [Suspect]
     Active Substance: SECUKINUMAB
     Dosage: 150 MG, ONCE/SINGLE (ROUTE: INJECTION)
     Route: 065
     Dates: start: 20200512, end: 20200512
  14. COSENTYX [Suspect]
     Active Substance: SECUKINUMAB
     Dosage: 150 MG, ONCE/SINGLE (ROUTE: INJECTION)
     Route: 065
     Dates: start: 20200612, end: 20200612
  15. COSENTYX [Suspect]
     Active Substance: SECUKINUMAB
     Dosage: 150 MG, ONCE/SINGLE (ROUTE: INJECTION)
     Route: 065
     Dates: start: 20200712, end: 20200712
  16. COSENTYX [Suspect]
     Active Substance: SECUKINUMAB
     Dosage: 150 MG, ONCE/SINGLE (ROUTE: INJECTION)
     Route: 065
     Dates: start: 20200812, end: 20200812
  17. COSENTYX [Suspect]
     Active Substance: SECUKINUMAB
     Dosage: 150 MG, ONCE/SINGLE (ROUTE: INJECTION)
     Route: 065
     Dates: start: 20200912, end: 20200912
  18. COSENTYX [Suspect]
     Active Substance: SECUKINUMAB
     Dosage: 150 MG, ONCE/SINGLE (ROUTE: INJECTION)
     Route: 065
     Dates: start: 20201012, end: 20201012
  19. COSENTYX [Suspect]
     Active Substance: SECUKINUMAB
     Dosage: 150 MG, ONCE/SINGLE (ROUTE: INJECTION)
     Route: 065
     Dates: start: 20201112, end: 20201112
  20. COSENTYX [Suspect]
     Active Substance: SECUKINUMAB
     Dosage: 150 MG, ONCE/SINGLE (ROUTE: INJECTION)
     Route: 065
     Dates: start: 20201212, end: 20201212
  21. COSENTYX [Suspect]
     Active Substance: SECUKINUMAB
     Dosage: 150 MG, ONCE/SINGLE (ROUTE: INJECTION)
     Route: 065
     Dates: start: 20210112, end: 20210112
  22. COSENTYX [Suspect]
     Active Substance: SECUKINUMAB
     Dosage: 150 MG, ONCE/SINGLE (ROUTE: INJECTION)
     Route: 065
     Dates: start: 20210212, end: 20210212
  23. COSENTYX [Suspect]
     Active Substance: SECUKINUMAB
     Dosage: 150 MG, ONCE/SINGLE (ROUTE: INJECTION)
     Route: 065
     Dates: start: 20210312, end: 20210312
  24. COSENTYX [Suspect]
     Active Substance: SECUKINUMAB
     Dosage: 150 MG, ONCE/SINGLE (ROUTE: INJECTION)
     Route: 065
     Dates: start: 20210412, end: 20210412
  25. COSENTYX [Suspect]
     Active Substance: SECUKINUMAB
     Dosage: 150 MG, ONCE/SINGLE (ROUTE: INJECTION)
     Route: 065
     Dates: start: 20210512, end: 20210512
  26. COSENTYX [Suspect]
     Active Substance: SECUKINUMAB
     Dosage: 150 MG, ONCE/SINGLE (ROUTE: INJECTION)
     Route: 065
     Dates: start: 20210612, end: 20210612
  27. COSENTYX [Suspect]
     Active Substance: SECUKINUMAB
     Dosage: 150 MG, ONCE/SINGLE (ROUTE: INJECTION)
     Route: 065
     Dates: start: 20210712, end: 20210712
  28. COSENTYX [Suspect]
     Active Substance: SECUKINUMAB
     Dosage: 150 MG, ONCE/SINGLE (ROUTE: INJECTION)
     Route: 065
     Dates: start: 20210812, end: 20210812
  29. COSENTYX [Suspect]
     Active Substance: SECUKINUMAB
     Dosage: 150 MG, ONCE/SINGLE (ROUTE: INJECTION)
     Route: 065
     Dates: start: 20210912, end: 20210912
  30. COSENTYX [Suspect]
     Active Substance: SECUKINUMAB
     Dosage: 150 MG, ONCE/SINGLE (ROUTE: INJECTION)
     Route: 065
     Dates: start: 20211012, end: 20211012
  31. COSENTYX [Suspect]
     Active Substance: SECUKINUMAB
     Dosage: 150 MG, ONCE/SINGLE (ROUTE: INJECTION)
     Route: 065
     Dates: start: 20211112, end: 20211112
  32. COSENTYX [Suspect]
     Active Substance: SECUKINUMAB
     Dosage: 150 MG, ONCE/SINGLE (ROUTE: INJECTION)
     Route: 065
     Dates: start: 20211212, end: 20211212
  33. COSENTYX [Suspect]
     Active Substance: SECUKINUMAB
     Dosage: 150 MG, ONCE/SINGLE (ROUTE: INJECTION)
     Route: 065
     Dates: start: 20220112, end: 20220112
  34. COSENTYX [Suspect]
     Active Substance: SECUKINUMAB
     Dosage: 150 MG, ONCE/SINGLE (ROUTE: INJECTION)
     Route: 065
     Dates: start: 20220212, end: 20220212
  35. COSENTYX [Suspect]
     Active Substance: SECUKINUMAB
     Dosage: 150 MG, ONCE/SINGLE (ROUTE: INJECTION)
     Route: 065
     Dates: start: 20220312, end: 20220312
  36. COSENTYX [Suspect]
     Active Substance: SECUKINUMAB
     Dosage: 150 MG, ONCE/SINGLE (ROUTE: INJECTION)
     Route: 065
     Dates: start: 20220420, end: 20220420
  37. COSENTYX [Suspect]
     Active Substance: SECUKINUMAB
     Dosage: 150 MG, ONCE/SINGLE (ROUTE: INJECTION)
     Route: 065
     Dates: start: 20220601
  38. LEVOTHYROXINE [Concomitant]
     Active Substance: LEVOTHYROXINE\LEVOTHYROXINE SODIUM
     Indication: Hypothyroidism
     Dosage: 100 UG
     Route: 048
     Dates: start: 20200213
  39. FERROUS GLYCINE SULFATE [Concomitant]
     Active Substance: FERROUS GLYCINE SULFATE
     Indication: Iron deficiency
     Dosage: 170 MG
     Route: 048
     Dates: start: 20200319
  40. VIGANTOL [Concomitant]
     Indication: Prophylaxis
     Dosage: 1000 IU
     Route: 048
     Dates: start: 20220224, end: 20220701
  41. FOLIC ACID [Concomitant]
     Active Substance: FOLIC ACID
     Indication: Prophylaxis
     Dosage: 5 MG
     Route: 048
     Dates: start: 20200831
  42. SELENIUM [Concomitant]
     Active Substance: SELENIUM
     Indication: Prophylaxis
     Dosage: 5 MG
     Route: 048
     Dates: start: 20220524, end: 20220620

REACTIONS (1)
  - Multiple sclerosis [Recovered/Resolved]

NARRATIVE: CASE EVENT DATE: 20220321
